FAERS Safety Report 9160709 (Version 2)
Quarter: 2013Q1

REPORT INFORMATION
  Report Type: Spontaneous
  Country: GB (occurrence: GB)
  Receive Date: 20130313
  Receipt Date: 20130326
  Transmission Date: 20140127
  Serious: Yes (Other)
  Sender: FDA-Public Use
  Company Number: GB-PFIZER INC-2013081485

PATIENT
  Age: 64 Year
  Sex: Female
  Weight: 78 kg

DRUGS (7)
  1. ATORVASTATIN [Suspect]
     Dosage: 40 MG, UNK
     Route: 048
     Dates: start: 20130129
  2. AMLODIPINE [Concomitant]
     Dates: start: 20121119, end: 20130226
  3. OMEPRAZOLE [Concomitant]
     Dates: start: 20121119, end: 20130226
  4. SIMVASTATIN [Concomitant]
     Dates: start: 20121119, end: 20130124
  5. HYDROCORTISONE [Concomitant]
     Dates: start: 20130111, end: 20130118
  6. HYDROCORTISONE [Concomitant]
     Dates: start: 20130124, end: 20130131
  7. CETIRIZINE [Concomitant]
     Dates: start: 20130124, end: 20130131

REACTIONS (2)
  - Local swelling [Recovering/Resolving]
  - Paraesthesia [Recovering/Resolving]
